FAERS Safety Report 6856389-7 (Version None)
Quarter: 2010Q2

REPORT INFORMATION
  Report Type: 
  Country: None (occurrence: None)
  Receive Date: 20100630
  Receipt Date: 20100326
  Transmission Date: 20101027
  Serious: No
  Sender: FDA-Public Use
  Company Number: 1000012734

PATIENT

DRUGS (1)
  1. BYSTOLIC [Suspect]

REACTIONS (2)
  - BLOOD PRESSURE ABNORMAL [None]
  - PALPITATIONS [None]
